FAERS Safety Report 10084579 (Version 1)
Quarter: 2014Q2

REPORT INFORMATION
  Report Type: Spontaneous
  Country: US (occurrence: None)
  Receive Date: 20140404
  Receipt Date: 20140404
  Transmission Date: 20141212
  Serious: Yes (Other)
  Sender: FDA-Public Use
  Company Number: 1359747

PATIENT
  Sex: Female

DRUGS (3)
  1. PERJETA [Suspect]
     Indication: HER-2 POSITIVE BREAST CANCER
     Dosage: 6TH CYCLE
  2. HERCEPTIN [Suspect]
     Indication: HER-2 POSITIVE BREAST CANCER
     Dosage: 6TH CYCLE
  3. TAXOTERE (DOCETAXEL) [Concomitant]

REACTIONS (3)
  - Flushing [None]
  - Dysaesthesia [None]
  - Palmar-plantar erythrodysaesthesia syndrome [None]
